FAERS Safety Report 26006982 (Version 1)
Quarter: 2025Q4

REPORT INFORMATION
  Report Type: Spontaneous
  Country: US (occurrence: None)
  Receive Date: 20251106
  Receipt Date: 20251106
  Transmission Date: 20260118
  Serious: Yes (Other)
  Sender: FDA-CTU
  Company Number: None

PATIENT
  Age: 63 Year
  Sex: Female
  Weight: 60.75 kg

DRUGS (2)
  1. RHOFADE [Suspect]
     Active Substance: OXYMETAZOLINE HYDROCHLORIDE
     Indication: Rosacea
     Dosage: OTHER QUANTITY : 1 SMALL AMOUNT OF TH;?FREQUENCY : AT BEDTIME;?
     Route: 061
     Dates: start: 20251101, end: 20251103
  2. statin 5MG [Concomitant]

REACTIONS (4)
  - Erythema [None]
  - Facial pain [None]
  - Swelling face [None]
  - Drug ineffective [None]

NARRATIVE: CASE EVENT DATE: 20251104
